FAERS Safety Report 6882016-9 (Version None)
Quarter: 2010Q2

REPORT INFORMATION
  Report Type: 
  Country: None (occurrence: None)
  Receive Date: 20100630
  Receipt Date: 20090219
  Transmission Date: 20101027
  Serious: No
  Sender: FDA-Public Use
  Company Number: 2009-01038

PATIENT
  Age: 30 Year
  Sex: Female
  Weight: 55.3388 kg

DRUGS (2)
  1. ZICAM COLD REMEDY GEL SWABS [Suspect]
     Dosage: 3 DOSES X 2 DAYS
     Dates: start: 20090217, end: 20090219
  2. JOLESSA [Concomitant]

REACTIONS (2)
  - AGEUSIA [None]
  - ANOSMIA [None]
